FAERS Safety Report 25361506 (Version 1)
Quarter: 2025Q2

REPORT INFORMATION
  Report Type: Spontaneous
  Country: US (occurrence: US)
  Receive Date: 20250527
  Receipt Date: 20250527
  Transmission Date: 20250716
  Serious: Yes (Hospitalization, Other)
  Sender: PURACAP PHARMACEUTICAL LLC
  Company Number: US-PURACAP-US-2025EPCLIT00620

PATIENT
  Age: 74 Year
  Sex: Female

DRUGS (1)
  1. NAPROXEN SODIUM [Suspect]
     Active Substance: NAPROXEN SODIUM
     Indication: Fibromyalgia
     Route: 065

REACTIONS (14)
  - Gastric fistula [Unknown]
  - Anastomotic ulcer [Unknown]
  - Drug abuse [Unknown]
  - Pericarditis [Unknown]
  - Pneumopericardium [Unknown]
  - Pleural effusion [Unknown]
  - Melaena [Unknown]
  - Gastric ulcer [Unknown]
  - Chest pain [Unknown]
  - Nausea [Unknown]
  - Vomiting [Unknown]
  - Overdose [Unknown]
  - Product use in unapproved indication [Unknown]
  - Intentional product misuse [Unknown]
